FAERS Safety Report 7667958-9 (Version None)
Quarter: 2011Q3

REPORT INFORMATION
  Report Type: 
  Country: None (occurrence: None)
  Receive Date: 20110808
  Receipt Date: 20110729
  Transmission Date: 20111222
  Serious: Yes (Hospitalization)
  Sender: FDA-Public Use
  Company Number: US-BIOGENIDEC-2011BI021701

PATIENT
  Age: 31 Year
  Sex: Female

DRUGS (12)
  1. AVONEX [Suspect]
     Route: 030
     Dates: start: 20090903
  2. EXTRA STRENGTH TYLENOL [Concomitant]
     Indication: ADVERSE DRUG REACTION
  3. FISH OIL [Concomitant]
     Indication: PRODUCT USED FOR UNKNOWN INDICATION
  4. AVONEX [Suspect]
     Indication: MULTIPLE SCLEROSIS
     Route: 030
     Dates: start: 20010309, end: 20070101
  5. NAPROSYN [Concomitant]
     Indication: ADVERSE DRUG REACTION
  6. BACLOFEN [Concomitant]
     Indication: PRODUCT USED FOR UNKNOWN INDICATION
  7. DIAZEPAM [Concomitant]
     Indication: PRODUCT USED FOR UNKNOWN INDICATION
  8. VITAMIN B-12 [Concomitant]
     Indication: PRODUCT USED FOR UNKNOWN INDICATION
  9. MECLAZINE [Concomitant]
     Indication: PRODUCT USED FOR UNKNOWN INDICATION
  10. AVONEX [Suspect]
     Route: 030
     Dates: start: 20090827
  11. AVONEX [Suspect]
     Route: 030
     Dates: start: 20090910
  12. AVONEX [Suspect]
     Route: 030
     Dates: start: 20090917, end: 20110712

REACTIONS (5)
  - VAGINAL INFECTION [None]
  - SINUSITIS [None]
  - MULTIPLE SCLEROSIS RELAPSE [None]
  - SINUS HEADACHE [None]
  - BASEDOW'S DISEASE [None]
